FAERS Safety Report 23925396 (Version 1)
Quarter: 2024Q2

REPORT INFORMATION
  Report Type: Spontaneous
  Country: US (occurrence: None)
  Receive Date: 20240530
  Receipt Date: 20240530
  Transmission Date: 20240716
  Serious: Yes (Hospitalization, Other)
  Sender: FDA-Public Use
  Company Number: None

PATIENT
  Age: 64 Year
  Sex: Female
  Weight: 75.15 kg

DRUGS (1)
  1. LUMASON [Suspect]
     Active Substance: SULFUR HEXAFLUORIDE
     Indication: Stress echocardiogram
     Dosage: 1 ML MILLITRE (S)  ONCE INTRAVENOUS BOLUS
     Route: 040
     Dates: start: 20240530, end: 20240530

REACTIONS (8)
  - Feeling hot [None]
  - Contrast media reaction [None]
  - Flushing [None]
  - Erythema [None]
  - Erythema [None]
  - Paraesthesia oral [None]
  - Throat irritation [None]
  - Dizziness [None]

NARRATIVE: CASE EVENT DATE: 20240530
